FAERS Safety Report 7391391-0 (Version None)
Quarter: 2011Q1

REPORT INFORMATION
  Report Type: 
  Country: None (occurrence: None)
  Receive Date: 20110324
  Receipt Date: 20110314
  Transmission Date: 20110831
  Serious: Yes (Hospitalization)
  Sender: FDA-Public Use
  Company Number: 1000019387

PATIENT
  Age: 29 Year
  Sex: Male

DRUGS (4)
  1. ZYPREXA [Suspect]
     Dosage: ORAL
     Route: 048
  2. SUBUTEX [Suspect]
     Dosage: (2 MG),ORAL
     Route: 048
  3. ESCITALOPRAM [Suspect]
     Dosage: ORAL
     Route: 048
  4. MEPRONIZINE [Suspect]
     Dosage: ORAL
     Route: 048

REACTIONS (5)
  - LOSS OF CONSCIOUSNESS [None]
  - BRADYCARDIA [None]
  - POISONING DELIBERATE [None]
  - CONFUSIONAL STATE [None]
  - HYPOTENSION [None]
